FAERS Safety Report 7678118-X (Version None)
Quarter: 2011Q3

REPORT INFORMATION
  Report Type: 
  Country: None (occurrence: None)
  Receive Date: 20110811
  Receipt Date: 20110808
  Transmission Date: 20111222
  Serious: Yes (Other)
  Sender: FDA-Public Use
  Company Number: IL-ROXANE LABORATORIES, INC.-2011-RO-01126RO

PATIENT
  Age: 13 Year
  Sex: Female
  Weight: 36 kg

DRUGS (6)
  1. FENTANYL [Suspect]
     Indication: INDUCTION OF ANAESTHESIA
     Route: 042
  2. REMIFENTANIL [Suspect]
     Indication: ANAESTHESIA
  3. ROCURONIUM BROMIDE [Suspect]
     Indication: HYPOTONIA
     Route: 042
  4. MIDAZOLAM HCL [Suspect]
     Indication: INDUCTION OF ANAESTHESIA
     Route: 042
  5. PROPOFOL [Suspect]
     Indication: GENERAL ANAESTHESIA
  6. COCAINE [Suspect]
     Indication: LOCAL ANAESTHESIA

REACTIONS (2)
  - DRUG DISPENSING ERROR [None]
  - DELAYED RECOVERY FROM ANAESTHESIA [None]
